FAERS Safety Report 11906220 (Version 2)
Quarter: 2016Q1

REPORT INFORMATION
  Report Type: Spontaneous
  Country: US (occurrence: US)
  Receive Date: 20160111
  Receipt Date: 20160204
  Transmission Date: 20160526
  Serious: Yes (Hospitalization, Other)
  Sender: FDA-Public Use
  Company Number: US-CIPLA LTD.-2015US10058

PATIENT

DRUGS (5)
  1. AMLODIPINE [Suspect]
     Active Substance: AMLODIPINE BESYLATE
     Indication: HYPERTENSION
     Dosage: UNK
     Route: 048
  2. AMLODIPINE BESYLATE/BENAZEPRIL HYDROCHLORIDE [Suspect]
     Active Substance: AMLODIPINE BESYLATE\BENAZEPRIL HYDROCHLORIDE
     Indication: HYPERTENSION
     Dosage: AMLODIPINE 10 MG/BENAZEPRIL 40 MG, QD
     Route: 048
  3. PRAZOSIN HCL [Suspect]
     Active Substance: PRAZOSIN HYDROCHLORIDE
     Indication: HYPERTENSION
     Dosage: 5 MG, BID
     Route: 048
  4. CAPTOPRIL. [Suspect]
     Active Substance: CAPTOPRIL
     Indication: HYPERTENSION
  5. TRIAMTERENE/HYDROCHLOROTHIAZIDE [Suspect]
     Active Substance: HYDROCHLOROTHIAZIDE\TRIAMTERENE
     Indication: HYPERTENSION
     Dosage: TRIAMTERENE 37.5 MG/HYDROCHLOROTHIAZIDE 25 MG, QD
     Route: 048

REACTIONS (14)
  - Posterior reversible encephalopathy syndrome [Recovered/Resolved]
  - Drug withdrawal syndrome [Unknown]
  - Renal ischaemia [Unknown]
  - Acute kidney injury [Recovered/Resolved]
  - Cognitive disorder [Unknown]
  - Cerebrovascular accident [Unknown]
  - Embolic cerebral infarction [Unknown]
  - Aphasia [Unknown]
  - Malaise [Unknown]
  - Hypotension [Unknown]
  - Blood urea nitrogen/creatinine ratio increased [Recovered/Resolved]
  - Anxiety [Unknown]
  - Stress [Unknown]
  - Weight decreased [Recovered/Resolved]
